FAERS Safety Report 8534330-9 (Version None)
Quarter: 2012Q3

REPORT INFORMATION
  Report Type: 
  Country: None (occurrence: None)
  Receive Date: 20120724
  Receipt Date: 20120717
  Transmission Date: 20120928
  Serious: Yes (Other)
  Sender: FDA-Public Use
  Company Number: JP-VERTEX PHARMACEUTICALS INC.-AE-2012-005830

PATIENT
  Age: 51 Year
  Sex: Male

DRUGS (14)
  1. REBETOL [Concomitant]
     Indication: HEPATITIS C
     Route: 048
     Dates: start: 20120302
  2. PEG-INTRON [Concomitant]
     Route: 058
     Dates: start: 20120330, end: 20120330
  3. ALLOPURINOL [Concomitant]
     Indication: HYPERURICAEMIA
     Route: 048
     Dates: start: 20120303, end: 20120412
  4. PROMACTA [Concomitant]
     Route: 048
  5. EBASTEL OD [Concomitant]
     Route: 048
     Dates: end: 20120405
  6. TELAVIC (TELAPREVIR) [Suspect]
     Indication: HEPATITIS C
     Route: 048
     Dates: start: 20120302, end: 20120524
  7. PEG-INTRON [Concomitant]
     Indication: HEPATITIS C
     Route: 058
     Dates: start: 20120302, end: 20120302
  8. URSO 250 [Concomitant]
     Route: 048
     Dates: end: 20120412
  9. PEG-INTRON [Concomitant]
     Route: 058
     Dates: start: 20120316, end: 20120323
  10. PEG-INTRON [Concomitant]
     Route: 058
     Dates: start: 20120406
  11. URSO 250 [Concomitant]
     Route: 048
     Dates: start: 20120413
  12. PEG-INTRON [Concomitant]
     Route: 058
     Dates: start: 20120309, end: 20120309
  13. OLMESARTAN MEDOXOMIL [Concomitant]
     Route: 048
  14. URSODIOL [Concomitant]
     Route: 048
     Dates: start: 20120413

REACTIONS (1)
  - NEUTROPHIL COUNT DECREASED [None]
